FAERS Safety Report 8112840-6 (Version None)
Quarter: 2012Q1

REPORT INFORMATION
  Report Type: 
  Country: None (occurrence: None)
  Receive Date: 20120203
  Receipt Date: 20120130
  Transmission Date: 20120608
  Serious: No
  Sender: FDA-Public Use
  Company Number: US-BAYER-2011-045717

PATIENT
  Age: 63 Year
  Sex: Female
  Weight: 61.23 kg

DRUGS (7)
  1. SINGULAIR [Concomitant]
     Indication: RHINITIS ALLERGIC
     Dosage: 10 MG, UNK
     Dates: start: 20090101
  2. BACLOFEN [Concomitant]
     Indication: HIATUS HERNIA
     Dosage: 2.5 MG, HS
     Dates: start: 20090101
  3. THYROID TAB [Concomitant]
     Indication: BLOOD THYROID STIMULATING HORMONE DECREASED
     Dosage: 120 MG, UNK
     Dates: start: 19940101
  4. NASACORT [Concomitant]
     Indication: NASAL INFLAMMATION
     Dosage: 50 MG, UNK
     Dates: start: 20100101
  5. CLIMARA [Suspect]
     Indication: HORMONE REPLACEMENT THERAPY
     Dosage: UNK
  6. CLIMARA [Suspect]
     Indication: OSTEOPOROSIS POSTMENOPAUSAL
     Dosage: UNK
     Dates: start: 20110301
  7. CORTEF [Concomitant]
     Indication: ADRENAL DISORDER
     Dosage: 40 MG, UNK

REACTIONS (3)
  - APPLICATION SITE INFECTION [None]
  - APPLICATION SITE PAIN [None]
  - APPLICATION SITE ERYTHEMA [None]
